FAERS Safety Report 4859464-1 (Version None)
Quarter: 2005Q4

REPORT INFORMATION
  Report Type: 
  Country: None (occurrence: None)
  Receive Date: 20051219
  Receipt Date: 20050614
  Transmission Date: 20060501
  Serious: No
  Sender: FDA-Public Use
  Company Number: US-GLAXOSMITHKLINE-A0562577A

PATIENT
  Age: 43 Year
  Sex: Female

DRUGS (4)
  1. MEMBERS MARK NTS ORIGINAL, 21MG [Suspect]
     Dates: start: 20050613
  2. NICODERM CQ [Suspect]
  3. NICODERM CQ [Suspect]
  4. NICODERM CQ [Suspect]

REACTIONS (2)
  - ABNORMAL DREAMS [None]
  - APPLICATION SITE PAIN [None]
